FAERS Safety Report 12375568 (Version 1)
Quarter: 2016Q2

REPORT INFORMATION
  Report Type: Spontaneous
  Country: DK (occurrence: DK)
  Receive Date: 20160517
  Receipt Date: 20160517
  Transmission Date: 20160815
  Serious: Yes (Hospitalization)
  Sender: FDA-Public Use
  Company Number: DK-PFIZER INC-2016254877

PATIENT
  Age: 91 Year
  Sex: Male

DRUGS (16)
  1. GABAPENTIN PFIZER [Suspect]
     Active Substance: GABAPENTIN
     Indication: PAIN
     Dosage: 300 MG, 3X/DAY
     Route: 048
     Dates: start: 20160429, end: 20160506
  2. MAREVAN [Concomitant]
     Active Substance: WARFARIN SODIUM
  3. INSULATARD /00646002/ [Concomitant]
     Active Substance: INSULIN HUMAN
  4. PINEX [Concomitant]
     Active Substance: ACETAMINOPHEN
  5. RAMIPRIL HEXAL [Concomitant]
     Active Substance: RAMIPRIL
  6. DUOTRAV [Concomitant]
     Active Substance: TIMOLOL MALEATE\TRAVOPROST
     Dates: start: 201602
  7. HJERTEMAGNYL /00228701/ [Concomitant]
     Active Substance: ASPIRIN\MAGNESIUM OXIDE
  8. GLYOKTYL [Concomitant]
  9. JANUVIA [Concomitant]
     Active Substance: SITAGLIPTIN PHOSPHATE
  10. OXYNORM [Concomitant]
     Active Substance: OXYCODONE HYDROCHLORIDE
  11. PANTOPRAZOL ACTAVIS [Concomitant]
     Active Substance: PANTOPRAZOLE SODIUM
  12. ZARATOR /01326102/ [Concomitant]
  13. BRICANYL [Concomitant]
     Active Substance: TERBUTALINE SULFATE
  14. FORMOTEROL FUMARATE DIHYDRATE [Concomitant]
     Active Substance: FORMOTEROL FUMARATE DIHYDRATE
     Dates: start: 201604
  15. NOVORAPID [Concomitant]
     Active Substance: INSULIN ASPART
  16. OXYCODONE HYDROCHLORIDE. [Concomitant]
     Active Substance: OXYCODONE HYDROCHLORIDE

REACTIONS (2)
  - Fall [Recovered/Resolved]
  - Dizziness [Not Recovered/Not Resolved]

NARRATIVE: CASE EVENT DATE: 20160429
